FAERS Safety Report 12423208 (Version 3)
Quarter: 2016Q3

REPORT INFORMATION
  Report Type: Spontaneous
  Country: JP (occurrence: JP)
  Receive Date: 20160601
  Receipt Date: 20160708
  Transmission Date: 20161109
  Serious: Yes (Other)
  Sender: FDA-Public Use
  Company Number: JP-009507513-1606JPN000114

PATIENT
  Sex: Female

DRUGS (2)
  1. GLACTIV [Suspect]
     Active Substance: SITAGLIPTIN
     Indication: PRODUCT USE ISSUE
     Dosage: UNK
     Route: 048
  2. RECALBON [Suspect]
     Active Substance: MINODRONIC ACID
     Indication: PRODUCT USE ISSUE
     Dosage: 50 MG, ONCE EVERY 4 WEEKS
     Route: 048
     Dates: start: 2013

REACTIONS (2)
  - Atypical femur fracture [Unknown]
  - Visual acuity reduced [Unknown]

NARRATIVE: CASE EVENT DATE: 2015
